FAERS Safety Report 5734512-5 (Version None)
Quarter: 2008Q2

REPORT INFORMATION
  Report Type: 
  Country: None (occurrence: None)
  Receive Date: 20080508
  Receipt Date: 20080508
  Transmission Date: 20081010
  Serious: No
  Sender: FDA-Public Use
  Company Number: None

PATIENT
  Age: 46 Year
  Sex: Female
  Weight: 75.2971 kg

DRUGS (2)
  1. CREST PRO-HEALTH PROCTER + GAMBLE [Suspect]
     Dosage: 5 TEASPOONS 1X PER DAY PO
     Route: 048
     Dates: start: 20070101, end: 20070628
  2. CREST PRO-HEALTH PROCTER + GAMBLE [Suspect]
     Dosage: 5 TEASPOONS 1X PER DAY PO
     Route: 048
     Dates: start: 20080301, end: 20080506

REACTIONS (1)
  - TOOTH DISCOLOURATION [None]
